FAERS Safety Report 10025987 (Version 1)
Quarter: 2014Q1

REPORT INFORMATION
  Report Type: Report from Study
  Country: US (occurrence: KR)
  Receive Date: 20140320
  Receipt Date: 20140320
  Transmission Date: 20141002
  Serious: Yes (Death, Hospitalization)
  Sender: FDA-Public Use
  Company Number: KR-FRI-1000064642

PATIENT
  Age: 85 Year
  Sex: Male
  Weight: 41 kg

DRUGS (18)
  1. ROFLUMILAST [Suspect]
     Indication: CHRONIC OBSTRUCTIVE PULMONARY DISEASE
     Dosage: 500 MCG
     Route: 048
     Dates: start: 20140228, end: 20140302
  2. ROFLUMILAST [Suspect]
     Indication: CHRONIC OBSTRUCTIVE PULMONARY DISEASE
     Dosage: 500 MCG
     Route: 048
     Dates: start: 20140304, end: 20140308
  3. SERETIDE 250 DISKUS [Concomitant]
     Dates: start: 20140204, end: 20140309
  4. ONBREZ BREEZHALER [Concomitant]
     Dates: start: 20130621, end: 20140309
  5. MUTERAN CAP [Concomitant]
     Dates: start: 20140207, end: 20140302
  6. MUCOMYST B.R SOL [Concomitant]
     Dates: start: 20140131, end: 20140301
  7. SALON H9C VIAL [Concomitant]
     Dates: start: 20140227, end: 20140228
  8. SPIRONOLACTONE [Concomitant]
     Dates: start: 20140227, end: 20140306
  9. DOBURAN INJ [Concomitant]
     Dates: start: 20140226, end: 20140228
  10. LANSTON CAP [Concomitant]
     Dates: start: 20140227, end: 20140302
  11. GASMOTIN TAB [Concomitant]
     Dates: start: 20140226, end: 20140302
  12. TRESTAN CAP [Concomitant]
     Dates: start: 20140227, end: 20140302
  13. RAMNOS CAP [Concomitant]
     Dates: start: 20140227, end: 20140302
  14. LIPITOR TAB [Concomitant]
     Dates: start: 20140227, end: 20140302
  15. BERAST C.TAB [Concomitant]
     Dates: end: 20140302
  16. DIABEX [Concomitant]
     Dates: start: 20140227, end: 20140302
  17. LASIX TAB [Concomitant]
     Dates: start: 20140227, end: 20140302
  18. DIGOSIN TAB [Concomitant]
     Dates: start: 20140227, end: 20140302

REACTIONS (1)
  - Chronic obstructive pulmonary disease [Fatal]
